FAERS Safety Report 17354754 (Version 1)
Quarter: 2020Q1

REPORT INFORMATION
  Report Type: Not Available
  Country: US (occurrence: US)
  Receive Date: 20200131
  Receipt Date: 20200131
  Transmission Date: 20200409
  Serious: No
  Sender: FDA-Public Use
  Company Number: US-NEUROCRINE BIOSCIENCES INC.-2020NBI00212

PATIENT
  Age: 22 Year
  Sex: Female

DRUGS (1)
  1. INGREZZA [Suspect]
     Active Substance: VALBENAZINE
     Indication: TARDIVE DYSKINESIA
     Dates: start: 20191231

REACTIONS (9)
  - Product dose omission [Unknown]
  - Gait disturbance [Recovered/Resolved]
  - Parkinsonism [Unknown]
  - Dizziness [Recovered/Resolved]
  - Muscle twitching [Recovered/Resolved]
  - Eye movement disorder [Recovered/Resolved]
  - Lethargy [Unknown]
  - Agitation [Recovered/Resolved]
  - Vision blurred [Recovered/Resolved]

NARRATIVE: CASE EVENT DATE: 20191231
